FAERS Safety Report 5211786-0 (Version None)
Quarter: 2007Q1

REPORT INFORMATION
  Report Type: 
  Country: None (occurrence: None)
  Receive Date: 20070118
  Receipt Date: 20070109
  Transmission Date: 20070707
  Serious: Yes (Life-Threatening)
  Sender: FDA-Public Use
  Company Number: HU-ROCHE-474475

PATIENT
  Age: 25 Year
  Sex: Female

DRUGS (6)
  1. PEGASYS [Suspect]
     Indication: HEPATITIS C
     Route: 058
     Dates: start: 20060415, end: 20061107
  2. COPEGUS [Concomitant]
     Indication: HEPATITIS C
     Dosage: DOSAGE REGIMEN REPORTED AS 2X1.
     Route: 048
     Dates: start: 20060415, end: 20061107
  3. FUROSEMIDE [Concomitant]
     Route: 048
  4. COVEREX [Concomitant]
     Indication: HYPERTENSION
     Route: 048
  5. FERRLECIT [Concomitant]
     Dosage: DRUG REPORTED AS FERRUM/FERRLECIT. DOSAGE REGIMEN REPORTED AS 1X.
     Route: 042
  6. METOTHYRIN [Concomitant]
     Indication: HYPOTHYROIDISM
     Dosage: DRUG REPORTED AS METHOTHYRIN.
     Dates: end: 20061107

REACTIONS (5)
  - GASTROINTESTINAL HAEMORRHAGE [None]
  - HAEMORRHAGE [None]
  - MUCOSAL HAEMORRHAGE [None]
  - SKIN HAEMORRHAGE [None]
  - THROMBOCYTOPENIA [None]
